FAERS Safety Report 5119943-9 (Version None)
Quarter: 2006Q3

REPORT INFORMATION
  Report Type: 
  Country: None (occurrence: None)
  Receive Date: 20060928
  Receipt Date: 20060919
  Transmission Date: 20061208
  Serious: Yes (Life-Threatening, Hospitalization, Other)
  Sender: FDA-Public Use
  Company Number: HQWYE992421SEP06

PATIENT
  Age: 8 Year
  Sex: Female

DRUGS (9)
  1. MYLOTARG [Suspect]
     Indication: ACUTE MYELOID LEUKAEMIA RECURRENT
     Dosage: 9 MG/M^2 1X PER 1 DAY INTRAVENOUS DRIP; SEE IMAGE
     Route: 041
     Dates: start: 20060703, end: 20060703
  2. MYLOTARG [Suspect]
     Indication: ACUTE MYELOID LEUKAEMIA RECURRENT
     Dosage: 9 MG/M^2 1X PER 1 DAY INTRAVENOUS DRIP; SEE IMAGE
     Route: 041
     Dates: start: 20060724, end: 20060724
  3. KEITEN (CEFPIROME SULFATE) [Concomitant]
  4. MEROPEN (MEROPENEM) [Concomitant]
  5. MINOCYCLINE HYDROCHLORIDE [Concomitant]
  6. VFEND [Concomitant]
  7. LASIX [Concomitant]
  8. ACYCLOVIR [Concomitant]
  9. MORPHINE [Concomitant]

REACTIONS (7)
  - BLOOD FIBRINOGEN DECREASED [None]
  - BLOOD PRESSURE DECREASED [None]
  - COAGULOPATHY [None]
  - HAEMATOCRIT DECREASED [None]
  - HAEMOGLOBIN DECREASED [None]
  - PLATELET COUNT DECREASED [None]
  - WEIGHT INCREASED [None]
